FAERS Safety Report 7529446-X (Version None)
Quarter: 2011Q2

REPORT INFORMATION
  Report Type: 
  Country: None (occurrence: None)
  Receive Date: 20110607
  Receipt Date: 20050511
  Transmission Date: 20111010
  Serious: Yes (Other)
  Sender: FDA-Public Use
  Company Number: PHHO2005AR07757

PATIENT
  Age: 70 Year
  Sex: Female

DRUGS (4)
  1. CARVEDILOL [Concomitant]
     Indication: HYPERTENSION
  2. ADALAT [Concomitant]
     Indication: HYPERTENSION
  3. ASPIRIN [Concomitant]
  4. DIOVAN HCT [Suspect]
     Indication: HYPERTENSION
     Dates: start: 19980101, end: 20050505

REACTIONS (2)
  - HYPERTENSION [None]
  - FEELING ABNORMAL [None]
